FAERS Safety Report 7279772-7 (Version None)
Quarter: 2011Q1

REPORT INFORMATION
  Report Type: 
  Country: None (occurrence: None)
  Receive Date: 20110208
  Receipt Date: 20110127
  Transmission Date: 20110831
  Serious: Yes (Hospitalization)
  Sender: FDA-Public Use
  Company Number: GB-JNJFOC-20110201625

PATIENT
  Age: 64 Year
  Sex: Female

DRUGS (3)
  1. TRAMADOL HCL [Suspect]
     Indication: MUSCLE SPASMS
     Route: 065
  2. TRAMADOL HCL [Suspect]
     Indication: BACK PAIN
     Route: 065
  3. METHOCARBAMOL [Concomitant]
     Route: 065

REACTIONS (5)
  - AGITATION [None]
  - MUSCULOSKELETAL STIFFNESS [None]
  - GRAND MAL CONVULSION [None]
  - CONFUSIONAL STATE [None]
  - GAIT DISTURBANCE [None]
